FAERS Safety Report 7670260-2 (Version None)
Quarter: 2011Q3

REPORT INFORMATION
  Report Type: 
  Country: None (occurrence: None)
  Receive Date: 20110809
  Receipt Date: 20110801
  Transmission Date: 20111222
  Serious: Yes (Hospitalization, Other)
  Sender: FDA-Public Use
  Company Number: US-BRISTOL-MYERS SQUIBB COMPANY-15938723

PATIENT
  Age: 68 Year
  Sex: Male

DRUGS (7)
  1. OXYCODONE HCL AND ACETAMINOPHEN [Concomitant]
     Indication: PAIN
  2. COUMADIN [Suspect]
  3. NIASPAN [Suspect]
     Route: 065
     Dates: start: 20071001
  4. BUPROPION HCL [Concomitant]
  5. ALPRAZOLAM [Concomitant]
     Dosage: 0.5MGX2 AT BEDTIME
  6. CITALOPRAM HYDROBROMIDE [Concomitant]
     Dosage: 40MG IN MORNING 20MG IN NOON
  7. POTASSIUM [Concomitant]

REACTIONS (6)
  - FALL [None]
  - ASTHENIA [None]
  - CEREBROVASCULAR ACCIDENT [None]
  - HEAD INJURY [None]
  - CEREBRAL HAEMORRHAGE [None]
  - DYSPHAGIA [None]
